FAERS Safety Report 7865688-1 (Version None)
Quarter: 2011Q4

REPORT INFORMATION
  Report Type: 
  Country: None (occurrence: None)
  Receive Date: 20111028
  Receipt Date: 20110207
  Transmission Date: 20120403
  Serious: No
  Sender: FDA-Public Use
  Company Number: US-GLAXOSMITHKLINE-A0912277A

PATIENT
  Age: 57 Year
  Sex: Female

DRUGS (2)
  1. VERAMYST [Concomitant]
  2. ADVAIR DISKUS 100/50 [Suspect]
     Indication: CHRONIC OBSTRUCTIVE PULMONARY DISEASE
     Dosage: 1PUFF TWICE PER DAY
     Route: 055
     Dates: start: 20100401

REACTIONS (8)
  - GINGIVAL PAIN [None]
  - BENIGN NEOPLASM [None]
  - GINGIVAL SWELLING [None]
  - LIP SWELLING [None]
  - ORAL PAIN [None]
  - GINGIVAL ERYTHEMA [None]
  - GINGIVAL DISORDER [None]
  - LIP PAIN [None]
